FAERS Safety Report 8139950 (Version 2)
Quarter: 2013Q1

REPORT INFORMATION
  Report Type: Spontaneous
  Country: US (occurrence: US)
  Receive Date: 20110916
  Receipt Date: 20130218
  Transmission Date: 20140127
  Serious: Yes (Other)
  Sender: FDA-Public Use
  Company Number: US-ROCHE-774699

PATIENT
  Sex: Male
  Weight: 205 kg

DRUGS (2)
  1. ACCUTANE [Suspect]
     Indication: ACNE
     Route: 048
     Dates: start: 200004, end: 200008
  2. ACCUTANE [Suspect]
     Route: 048
     Dates: start: 200111, end: 200201

REACTIONS (5)
  - Inflammatory bowel disease [Unknown]
  - Colitis ulcerative [Unknown]
  - Stress [Unknown]
  - Rectal polyp [Unknown]
  - Haemorrhoids [Unknown]
